FAERS Safety Report 5151262-7 (Version None)
Quarter: 2006Q4

REPORT INFORMATION
  Report Type: 
  Country: None (occurrence: None)
  Receive Date: 20061114
  Receipt Date: 20061114
  Transmission Date: 20070319
  Serious: Yes (Hospitalization)
  Sender: FDA-Public Use
  Company Number: None

PATIENT
  Age: 38 Year
  Sex: Male
  Weight: 97.5234 kg

DRUGS (2)
  1. ACETAMINOPHEN [Suspect]
     Indication: HEADACHE
     Dosage: 2 TABLETS   EVERY 6 HOURS  PO
     Route: 048
     Dates: start: 20060801, end: 20061109
  2. ACETAMINOPHEN [Suspect]
     Indication: NECK PAIN
     Dosage: 2 TABLETS   EVERY 6 HOURS  PO
     Route: 048
     Dates: start: 20060801, end: 20061109

REACTIONS (5)
  - ASTHENIA [None]
  - GASTROENTERITIS [None]
  - HAEMATEMESIS [None]
  - PHARMACEUTICAL PRODUCT COMPLAINT [None]
  - PHARYNGOLARYNGEAL PAIN [None]
